FAERS Safety Report 24282335 (Version 1)
Quarter: 2024Q3

REPORT INFORMATION
  Report Type: Report from Study
  Country: US (occurrence: US)
  Receive Date: 20240904
  Receipt Date: 20240904
  Transmission Date: 20241017
  Serious: Yes (Hospitalization)
  Sender: HLS THERAPEUTICS
  Company Number: US-HLS-202400662

PATIENT
  Age: 47 Year
  Sex: Male

DRUGS (2)
  1. CLOZARIL [Suspect]
     Active Substance: CLOZAPINE
     Indication: Product used for unknown indication
     Dosage: 100 MG EVERY BEDTIME
     Route: 048
  2. INVEGA SUSTENNA [Concomitant]
     Active Substance: PALIPERIDONE PALMITATE
     Indication: Schizophrenia
     Dosage: 234 MG/1.5 ML EVERY 21 DAYS
     Route: 030

REACTIONS (8)
  - Neutrophil count increased [Unknown]
  - Aggression [Unknown]
  - Dizziness [Unknown]
  - Malaise [Unknown]
  - Treatment noncompliance [Recovering/Resolving]
  - Delusion [Unknown]
  - Mental disorder [Unknown]
  - Aggression [Unknown]

NARRATIVE: CASE EVENT DATE: 20240608
